FAERS Safety Report 10240239 (Version 1)
Quarter: 2014Q2

REPORT INFORMATION
  Report Type: Spontaneous
  Country: GB (occurrence: GB)
  Receive Date: 20140617
  Receipt Date: 20140617
  Transmission Date: 20141212
  Serious: Yes (Other)
  Sender: FDA-Public Use
  Company Number: PHHY2014GB071675

PATIENT
  Sex: 0

DRUGS (4)
  1. DIGOXIN [Suspect]
     Indication: TACHYCARDIA FOETAL
     Dosage: MATERNAL DOSE: 125 MG, BID
     Route: 064
  2. FLECAINIDE [Suspect]
     Indication: TACHYCARDIA FOETAL
     Dosage: MATERNAL DOSE: 100 MG, TID
     Route: 064
  3. FLECAINIDE [Suspect]
     Dosage: MATERNAL DOSE: 100 MG, TID
     Route: 064
  4. ATENOLOL [Suspect]
     Indication: TACHYCARDIA FOETAL
     Dosage: MATERNAL DOSE: 50 MG, BID
     Route: 064

REACTIONS (6)
  - Hydrops foetalis [Recovered/Resolved]
  - Atrial septal defect [Unknown]
  - Foetal distress syndrome [Unknown]
  - Supraventricular tachycardia [Recovered/Resolved]
  - Disease recurrence [Unknown]
  - Foetal exposure during pregnancy [Unknown]
